FAERS Safety Report 6333597-5 (Version None)
Quarter: 2009Q3

REPORT INFORMATION
  Report Type: 
  Country: None (occurrence: None)
  Receive Date: 20090829
  Receipt Date: 20090722
  Transmission Date: 20100115
  Serious: No
  Sender: FDA-Public Use
  Company Number: PR-ABBOTT-08P-131-0489084-00

PATIENT
  Sex: Male

DRUGS (1)
  1. SIMCOR [Suspect]
     Indication: DYSLIPIDAEMIA
     Route: 048

REACTIONS (3)
  - HEPATIC ENZYME INCREASED [None]
  - HIGH DENSITY LIPOPROTEIN [None]
  - LOW DENSITY LIPOPROTEIN INCREASED [None]
